FAERS Safety Report 8485959-8 (Version None)
Quarter: 2012Q3

REPORT INFORMATION
  Report Type: 
  Country: None (occurrence: None)
  Receive Date: 20120703
  Receipt Date: 20120621
  Transmission Date: 20120928
  Serious: Yes (Hospitalization, Other)
  Sender: FDA-Public Use
  Company Number: US-BRISTOL-MYERS SQUIBB COMPANY-16705832

PATIENT
  Sex: Female

DRUGS (2)
  1. METOPROLOL SUCCINATE [Concomitant]
  2. GLUCOPHAGE XR [Suspect]
     Dosage: FOR SEVERAL (3-4) YEARS
     Route: 048

REACTIONS (4)
  - FLATULENCE [None]
  - WEIGHT DECREASED [None]
  - CARDIAC DISORDER [None]
  - ADRENAL NEOPLASM [None]
